FAERS Safety Report 7474258-9 (Version None)
Quarter: 2011Q2

REPORT INFORMATION
  Report Type: 
  Country: None (occurrence: None)
  Receive Date: 20110511
  Receipt Date: 20110503
  Transmission Date: 20111010
  Serious: Yes (Other)
  Sender: FDA-Public Use
  Company Number: US-RB-024357-11

PATIENT
  Age: 31 Year
  Sex: Female

DRUGS (2)
  1. SUBOXONE [Suspect]
     Indication: PRODUCT USED FOR UNKNOWN INDICATION
     Dosage: DOSING INFORMATION UNKNOWN
     Route: 065
  2. SUBOXONE [Suspect]
     Indication: PRODUCT USED FOR UNKNOWN INDICATION
     Dosage: SUBLINGUAL FILM; DOSING INFORMATION
     Route: 065

REACTIONS (12)
  - COLD SWEAT [None]
  - DRUG DEPENDENCE [None]
  - CERVIX CARCINOMA [None]
  - DIARRHOEA [None]
  - MUSCLE SPASMS [None]
  - CONDITION AGGRAVATED [None]
  - HYPERHIDROSIS [None]
  - PAIN [None]
  - COLLAPSE OF LUNG [None]
  - UTERINE CANCER [None]
  - HEPATITIS C [None]
  - SEPSIS [None]
